FAERS Safety Report 14295358 (Version 2)
Quarter: 2017Q4

REPORT INFORMATION
  Report Type: Spontaneous
  Country: US (occurrence: US)
  Receive Date: 20171218
  Receipt Date: 20171227
  Transmission Date: 20180321
  Serious: No
  Sender: FDA-Public Use
  Company Number: US-PFIZER INC-2017533406

PATIENT
  Age: 78 Year
  Sex: Female

DRUGS (1)
  1. LEVOXYL [Suspect]
     Active Substance: LEVOTHYROXINE SODIUM
     Dosage: 25 UG, UNK

REACTIONS (5)
  - Urticaria [Unknown]
  - Swelling face [Unknown]
  - Eye swelling [Unknown]
  - Pruritus generalised [Unknown]
  - Rash generalised [Unknown]
